FAERS Safety Report 5359149-1 (Version None)
Quarter: 2007Q2

REPORT INFORMATION
  Report Type: 
  Country: None (occurrence: None)
  Receive Date: 20070530
  Receipt Date: 20070205
  Transmission Date: 20071010
  Serious: No
  Sender: FDA-Public Use
  Company Number: 2007PV029672

PATIENT
  Age: 62 Year
  Sex: Male

DRUGS (8)
  1. BYETTA [Suspect]
     Indication: DIABETES MELLITUS NON-INSULIN-DEPENDENT
     Dosage: 5 MCG; BID; SC
     Route: 058
     Dates: start: 20070101, end: 20070101
  2. LANTUS [Concomitant]
  3. METFORMIN HCL [Concomitant]
  4. NOVOLOG [Concomitant]
  5. LOVASTATIN [Concomitant]
  6. LISINOPRIL [Concomitant]
  7. SHARK CARTILAGE [Concomitant]
  8. CHROMIUM PICOLINATE [Concomitant]

REACTIONS (4)
  - ABDOMINAL PAIN UPPER [None]
  - FEELING ABNORMAL [None]
  - GASTROINTESTINAL PAIN [None]
  - PAIN [None]
